FAERS Safety Report 12679180 (Version 1)
Quarter: 2016Q3

REPORT INFORMATION
  Report Type: Spontaneous
  Country: IN (occurrence: IN)
  Receive Date: 20160824
  Receipt Date: 20160824
  Transmission Date: 20161109
  Serious: Yes (Other)
  Sender: FDA-Public Use
  Company Number: IN-ACCORD-043331

PATIENT
  Age: 56 Year
  Sex: Male

DRUGS (5)
  1. TACROLIMUS. [Suspect]
     Active Substance: TACROLIMUS
     Indication: RENAL TRANSPLANT
     Dosage: ON DAY 5 (3 MG TWICE DAILY)
  2. RITUXIMAB [Concomitant]
     Active Substance: RITUXIMAB
     Dosage: ON DAY -30
  3. MYCOPHENOLIC ACID. [Suspect]
     Active Substance: MYCOPHENOLIC ACID
     Indication: RENAL TRANSPLANT
     Dosage: ON DAY 5
  4. PREDNISOLONE. [Suspect]
     Active Substance: PREDNISOLONE
     Indication: RENAL TRANSPLANT
     Dosage: ON DAY 5
  5. BASILIXIMAB [Concomitant]
     Active Substance: BASILIXIMAB
     Dosage: ON DAY 0 AND DAY 4 OF SURGERY

REACTIONS (4)
  - Epstein-Barr virus associated lymphoma [Recovered/Resolved]
  - Plasma cell myeloma [Recovered/Resolved]
  - Transplant dysfunction [Recovered/Resolved]
  - Osteomyelitis bacterial [Unknown]
